FAERS Safety Report 7951081-X (Version None)
Quarter: 2011Q4

REPORT INFORMATION
  Report Type: 
  Country: None (occurrence: None)
  Receive Date: 20111201
  Receipt Date: 20111125
  Transmission Date: 20120403
  Serious: Yes (Hospitalization)
  Sender: FDA-Public Use
  Company Number: NL-AMGEN-NLDSP2011059865

PATIENT
  Age: 35 Year
  Sex: Male
  Weight: 76 kg

DRUGS (15)
  1. PREDNISONE [Suspect]
     Dosage: 100 MG, UNK
     Dates: start: 20101202
  2. PREDNISONE [Suspect]
     Indication: DIFFUSE LARGE B-CELL LYMPHOMA
     Dosage: 100 MG, UNK
     Route: 048
     Dates: start: 20100924
  3. PANTOPRAZOLE [Concomitant]
     Dosage: 40 MG, QD
     Route: 054
     Dates: start: 20100909
  4. CYCLOPHOSPHAMIDE [Suspect]
     Indication: DIFFUSE LARGE B-CELL LYMPHOMA
     Dosage: 1500 MG, UNK
     Route: 042
     Dates: start: 20100924
  5. DOXORUBICIN HCL [Suspect]
     Indication: DIFFUSE LARGE B-CELL LYMPHOMA
     Dosage: 100 MG, UNK
     Route: 042
     Dates: start: 20100924
  6. RITUXIMAB [Suspect]
     Dosage: 700 MG, UNK
     Route: 048
     Dates: start: 20101202
  7. OXYCODONE HCL [Concomitant]
     Indication: ABDOMINAL PAIN UPPER
     Dosage: 5 MG, UNK
     Route: 048
  8. NEUPOGEN [Suspect]
     Indication: DIFFUSE LARGE B-CELL LYMPHOMA
     Dosage: 6 MG, UNK
     Route: 058
     Dates: start: 20100925
  9. RITUXIMAB [Suspect]
     Indication: DIFFUSE LARGE B-CELL LYMPHOMA
     Dosage: 700 MG, UNK
     Route: 042
     Dates: start: 20100924
  10. VINBLASTINE SULFATE [Suspect]
     Dosage: 6 MG/M2, UNK
     Dates: start: 20110120
  11. DOXORUBICIN HCL [Suspect]
     Dosage: 100 MG, UNK
     Dates: start: 20101202
  12. NEUPOGEN [Suspect]
     Dosage: 6 MG, UNK
     Dates: start: 20101202
  13. CYCLOPHOSPHAMIDE [Suspect]
     Dosage: 1500 MG, UNK
     Dates: start: 20101202
  14. VINBLASTINE SULFATE [Suspect]
     Indication: DIFFUSE LARGE B-CELL LYMPHOMA
     Dosage: 11.8 MG, UNK
     Route: 042
     Dates: start: 20101202
  15. MORPHINE [Concomitant]
     Indication: ABDOMINAL PAIN UPPER
     Dosage: 20 MG, BID
     Route: 048

REACTIONS (1)
  - TONSILLITIS [None]
